FAERS Safety Report 8949547 (Version 1)
Quarter: 2012Q4

REPORT INFORMATION
  Report Type: 
  Country: US (occurrence: US)
  Receive Date: 20121206
  Receipt Date: 20121206
  Transmission Date: 20130627
  Serious: Yes (Other)
  Sender: FDA-Public Use
  Company Number: US-PFIZER INC-2012301631

PATIENT
  Age: 69 Year
  Sex: Male

DRUGS (3)
  1. RIFAMPIN [Suspect]
     Indication: RIGORS
     Dosage: UNK
  2. RIFAMPIN [Suspect]
     Indication: HYPERHIDROSIS
  3. RIFAMPIN [Suspect]
     Indication: PYREXIA

REACTIONS (1)
  - Renal injury [Unknown]
